FAERS Safety Report 5060925-3 (Version None)
Quarter: 2006Q3

REPORT INFORMATION
  Report Type: 
  Country: None (occurrence: None)
  Receive Date: 20060725
  Receipt Date: 20060715
  Transmission Date: 20061208
  Serious: Yes (Life-Threatening, Other)
  Sender: FDA-Public Use
  Company Number: US-JNJFOC-20060703321

PATIENT
  Sex: Female
  Weight: 72.58 kg

DRUGS (6)
  1. REMICADE [Suspect]
     Indication: CROHN'S DISEASE
     Route: 042
     Dates: start: 20000101, end: 20051001
  2. NEURONTIN [Concomitant]
  3. 6-MP [Concomitant]
     Indication: CROHN'S DISEASE
  4. ULTRAM [Concomitant]
  5. SOMA [Concomitant]
  6. DARVOCET [Concomitant]

REACTIONS (3)
  - HODGKIN'S DISEASE [None]
  - HYPOAESTHESIA [None]
  - INFUSION RELATED REACTION [None]
